FAERS Safety Report 10886494 (Version 1)
Quarter: 2015Q1

REPORT INFORMATION
  Report Type: Spontaneous
  Country: US (occurrence: US)
  Receive Date: 20150304
  Receipt Date: 20150304
  Transmission Date: 20150721
  Serious: Yes (Other)
  Sender: FDA-Public Use
  Company Number: US-ABBVIE-15P-163-1352809-00

PATIENT
  Sex: Female

DRUGS (1)
  1. LUPRON DEPOT [Suspect]
     Active Substance: LEUPROLIDE ACETATE
     Indication: DEMENTIA ALZHEIMER^S TYPE
     Dosage: RECEIVED ON DAY 0, AND AT WEEK 12, 24, 36
     Route: 030

REACTIONS (1)
  - Upper gastrointestinal haemorrhage [Unknown]
